FAERS Safety Report 11895160 (Version 1)
Quarter: 2016Q1

REPORT INFORMATION
  Report Type: Spontaneous
  Country: US (occurrence: US)
  Receive Date: 20160107
  Receipt Date: 20160107
  Transmission Date: 20160526
  Serious: No
  Sender: FDA-Public Use
  Company Number: US-DRREDDYS-USA/USA/15/0049933

PATIENT
  Age: 55 Year
  Sex: Female
  Weight: 49.4 kg

DRUGS (2)
  1. HABITROL [Suspect]
     Active Substance: NICOTINE
  2. HABITROL [Suspect]
     Active Substance: NICOTINE
     Indication: SMOKING CESSATION THERAPY
     Route: 065
     Dates: start: 201507

REACTIONS (4)
  - Urticaria [Recovered/Resolved]
  - Product quality issue [Unknown]
  - Nausea [Recovered/Resolved]
  - Headache [Recovered/Resolved]
